FAERS Safety Report 15240510 (Version 1)
Quarter: 2018Q3

REPORT INFORMATION
  Report Type: Spontaneous
  Country: FR (occurrence: FR)
  Receive Date: 20180804
  Receipt Date: 20180804
  Transmission Date: 20181010
  Serious: Yes (Death, Life-Threatening, Hospitalization)
  Sender: FDA-Public Use
  Company Number: FR-ACCORD-070429

PATIENT
  Age: 73 Year
  Sex: Male

DRUGS (1)
  1. DOCETAXEL ACCORD [Suspect]
     Active Substance: DOCETAXEL
     Indication: PROSTATE CANCER METASTATIC
     Route: 042
     Dates: start: 20171205, end: 20171205

REACTIONS (6)
  - Food intolerance [Unknown]
  - Vomiting [Unknown]
  - Cardiac arrest [Fatal]
  - Diarrhoea [Unknown]
  - Febrile neutropenia [Unknown]
  - Septic shock [Fatal]

NARRATIVE: CASE EVENT DATE: 20171208
